FAERS Safety Report 6657955-4 (Version None)
Quarter: 2010Q1

REPORT INFORMATION
  Report Type: 
  Country: None (occurrence: None)
  Receive Date: 20100330
  Receipt Date: 20100322
  Transmission Date: 20100710
  Serious: Yes (Other)
  Sender: FDA-Public Use
  Company Number: US-ROCHE-693634

PATIENT
  Age: 58 Year
  Sex: Male

DRUGS (3)
  1. AVASTIN [Suspect]
     Indication: NON-SMALL CELL LUNG CANCER STAGE IV
     Route: 065
     Dates: end: 20081205
  2. CARBOPLATIN [Suspect]
     Indication: NON-SMALL CELL LUNG CANCER STAGE IV
     Dosage: RECEIVED 6 CYCLES
     Route: 065
  3. TAXOL [Suspect]
     Indication: NON-SMALL CELL LUNG CANCER STAGE IV
     Dosage: RECEIVED 6 CYCLES
     Route: 065

REACTIONS (1)
  - METASTASES TO MENINGES [None]
